FAERS Safety Report 7611796-X (Version None)
Quarter: 2011Q3

REPORT INFORMATION
  Report Type: 
  Country: None (occurrence: None)
  Receive Date: 20110715
  Receipt Date: 20110712
  Transmission Date: 20111222
  Serious: Yes (Death)
  Sender: FDA-Public Use
  Company Number: NL-PFIZER INC-2011156944

PATIENT
  Age: 64 Year
  Sex: Male

DRUGS (1)
  1. MYLOTARG [Suspect]
     Indication: ACUTE MYELOID LEUKAEMIA
     Dosage: 12 MG, UNK
     Route: 042
     Dates: start: 20031129, end: 20031213

REACTIONS (1)
  - CEREBRAL HAEMORRHAGE [None]
